FAERS Safety Report 13618958 (Version 1)
Quarter: 2017Q2

REPORT INFORMATION
  Report Type: Spontaneous
  Country: US (occurrence: US)
  Receive Date: 20170606
  Receipt Date: 20170606
  Transmission Date: 20170830
  Serious: Yes (Hospitalization)
  Sender: FDA-Public Use
  Company Number: None

PATIENT
  Age: 75 Year
  Sex: Male
  Weight: 73.7 kg

DRUGS (1)
  1. LENALIDOMIDE [Suspect]
     Active Substance: LENALIDOMIDE
     Indication: HYPERTENSION
     Route: 048
     Dates: start: 20170125, end: 20170210

REACTIONS (2)
  - Angioedema [None]
  - Visual impairment [None]

NARRATIVE: CASE EVENT DATE: 20170211
